FAERS Safety Report 10482809 (Version 1)
Quarter: 2014Q3

REPORT INFORMATION
  Report Type: Spontaneous
  Country: KW (occurrence: KW)
  Receive Date: 20140929
  Receipt Date: 20140929
  Transmission Date: 20150326
  Serious: Yes (Death, Hospitalization)
  Sender: FDA-Public Use
  Company Number: KW-BIOMARINAP-KW-2014-104174

PATIENT
  Age: 21 Year
  Sex: Male
  Weight: 27 kg

DRUGS (1)
  1. NAGLAZYME [Suspect]
     Active Substance: GALSULFASE
     Indication: PRODUCT USED FOR UNKNOWN INDICATION
     Dosage: UNK, QW
     Route: 042
     Dates: start: 20100916

REACTIONS (2)
  - Renal failure [Unknown]
  - Lung infection [Fatal]

NARRATIVE: CASE EVENT DATE: 20140924
